FAERS Safety Report 16981595 (Version 1)
Quarter: 2019Q4

REPORT INFORMATION
  Report Type: Report from Study
  Country: CN (occurrence: CN)
  Receive Date: 20191101
  Receipt Date: 20191101
  Transmission Date: 20200122
  Serious: Yes (Death)
  Sender: FDA-Public Use
  Company Number: CN-ROCHE-2129565

PATIENT
  Age: 48 Year
  Sex: Female
  Weight: 52 kg

DRUGS (1)
  1. AVASTIN [Suspect]
     Active Substance: BEVACIZUMAB
     Indication: RECTAL CANCER
     Route: 041
     Dates: start: 20151012

REACTIONS (11)
  - Death [Fatal]
  - Drug intolerance [Unknown]
  - Marasmus [Unknown]
  - Limb discomfort [Unknown]
  - Vomiting [Unknown]
  - Mental disorder [Unknown]
  - Diarrhoea [Unknown]
  - Pyrexia [Unknown]
  - Discomfort [Unknown]
  - Gait disturbance [Unknown]
  - Infusion site inflammation [Unknown]
